FAERS Safety Report 5252875-4 (Version None)
Quarter: 2007Q1

REPORT INFORMATION
  Report Type: 
  Country: None (occurrence: None)
  Receive Date: 20070227
  Receipt Date: 20070215
  Transmission Date: 20070707
  Serious: Yes (Other)
  Sender: FDA-Public Use
  Company Number: 2007BL000509

PATIENT
  Age: 42 Year
  Sex: Male

DRUGS (1)
  1. CROMOPTIC [Suspect]
     Indication: CONJUNCTIVITIS ALLERGIC
     Dosage: 2 DROP;OPHTHALMIC
     Route: 047

REACTIONS (2)
  - ASTHMA [None]
  - DISEASE RECURRENCE [None]
